FAERS Safety Report 21518703 (Version 1)
Quarter: 2022Q4

REPORT INFORMATION
  Report Type: Spontaneous
  Country: US (occurrence: None)
  Receive Date: 20221027
  Receipt Date: 20221027
  Transmission Date: 20230113
  Serious: Yes (Other)
  Sender: FDA-Public Use
  Company Number: None

PATIENT
  Age: 42 Year
  Sex: Female
  Weight: 58.5 kg

DRUGS (1)
  1. MONTELUKAST [Suspect]
     Active Substance: MONTELUKAST SODIUM
     Dosage: FREQUENCY : AT BEDTIME;?
     Route: 048
     Dates: start: 20221025, end: 20221025

REACTIONS (10)
  - Insomnia [None]
  - Agitation [None]
  - Anger [None]
  - Aphasia [None]
  - Impaired driving ability [None]
  - Heart rate irregular [None]
  - Blood pressure increased [None]
  - Headache [None]
  - Nausea [None]
  - Memory impairment [None]

NARRATIVE: CASE EVENT DATE: 20221026
